FAERS Safety Report 16174173 (Version 1)
Quarter: 2019Q2

REPORT INFORMATION
  Report Type: Spontaneous
  Country: US (occurrence: US)
  Receive Date: 20190407
  Receipt Date: 20190407
  Transmission Date: 20190711
  Serious: No
  Sender: FDA-Public Use
  Company Number: None

PATIENT
  Age: 4 Year
  Sex: Female
  Weight: 14.85 kg

DRUGS (1)
  1. CANTHARIDIN [Suspect]
     Active Substance: CANTHARIDIN
     Indication: MOLLUSCUM CONTAGIOSUM

REACTIONS (12)
  - Diarrhoea [None]
  - Erythema [None]
  - Pyrexia [None]
  - Crying [None]
  - Skin exfoliation [None]
  - Lymphadenopathy [None]
  - Vomiting [None]
  - Pain [None]
  - Burning sensation [None]
  - Skin infection [None]
  - Skin erosion [None]
  - Scab [None]
